FAERS Safety Report 4945950-2 (Version None)
Quarter: 2006Q1

REPORT INFORMATION
  Report Type: 
  Country: None (occurrence: None)
  Receive Date: 20060206
  Receipt Date: 20050418
  Transmission Date: 20060701
  Serious: No
  Sender: FDA-Public Use
  Company Number: 05P-163-0288358-00

PATIENT
  Age: 70 Year
  Sex: Male

DRUGS (1)
  1. NIMBEX [Suspect]
     Dosage: 0.2 MG/KG, INTRAVENOUS
     Route: 042

REACTIONS (1)
  - NEUROMUSCULAR BLOCK PROLONGED [None]
